FAERS Safety Report 14171359 (Version 1)
Quarter: 2017Q4

REPORT INFORMATION
  Report Type: Spontaneous
  Country: JP (occurrence: JP)
  Receive Date: 20171108
  Receipt Date: 20171108
  Transmission Date: 20180321
  Serious: Yes (Hospitalization)
  Sender: FDA-Public Use
  Company Number: PHHY2017JP160579

PATIENT
  Age: 64 Year
  Sex: Female

DRUGS (6)
  1. TACROLIMUS. [Suspect]
     Active Substance: TACROLIMUS
     Indication: SARCOIDOSIS
     Dosage: 3 MG, QD
     Route: 065
  2. PREDNISOLONE. [Suspect]
     Active Substance: PREDNISOLONE
     Indication: SARCOIDOSIS
     Dosage: 25 MG, QD
     Route: 048
  3. TACROLIMUS. [Suspect]
     Active Substance: TACROLIMUS
     Indication: SYSTEMIC SCLERODERMA
  4. PREDNISOLONE. [Suspect]
     Active Substance: PREDNISOLONE
     Indication: SYSTEMIC SCLERODERMA
     Dosage: 5 MG, UNK (5 MG/DAY EVERY FOUR WEEK)
     Route: 048
  5. PREDNISOLONE. [Suspect]
     Active Substance: PREDNISOLONE
     Dosage: 7.5 MG, QD
     Route: 048
  6. PREDNISOLONE. [Suspect]
     Active Substance: PREDNISOLONE
     Dosage: 5 MG, QD
     Route: 048

REACTIONS (7)
  - Alveolar proteinosis [Recovering/Resolving]
  - Rales [Recovering/Resolving]
  - Concomitant disease aggravated [Recovering/Resolving]
  - Product use in unapproved indication [Unknown]
  - Dyspnoea exertional [Recovering/Resolving]
  - Productive cough [Recovering/Resolving]
  - Cell marker increased [Recovering/Resolving]

NARRATIVE: CASE EVENT DATE: 201503
